FAERS Safety Report 10469579 (Version 1)
Quarter: 2014Q3

REPORT INFORMATION
  Report Type: Spontaneous
  Country: US (occurrence: None)
  Receive Date: 20140922
  Receipt Date: 20140922
  Transmission Date: 20150326
  Serious: Yes (Hospitalization)
  Sender: FDA-Public Use
  Company Number: None

PATIENT
  Age: 55 Year
  Sex: Female
  Weight: 74 kg

DRUGS (3)
  1. BEVACIZUMAB (RHUMAB VEGF) (704865) [Suspect]
     Active Substance: BEVACIZUMAB
  2. TAXOL [Suspect]
     Active Substance: PACLITAXEL
  3. CARBOPLATIN. [Suspect]
     Active Substance: CARBOPLATIN

REACTIONS (6)
  - Vomiting [None]
  - Diarrhoea [None]
  - Decreased appetite [None]
  - Treatment noncompliance [None]
  - Weight decreased [None]
  - Nausea [None]

NARRATIVE: CASE EVENT DATE: 20140904
